FAERS Safety Report 24582834 (Version 1)
Quarter: 2024Q4

REPORT INFORMATION
  Report Type: Spontaneous
  Country: FR (occurrence: FR)
  Receive Date: 20241106
  Receipt Date: 20241106
  Transmission Date: 20250115
  Serious: Yes (Hospitalization)
  Sender: ACCORD
  Company Number: None

PATIENT
  Age: 96 Year
  Sex: Female

DRUGS (10)
  1. QUETIAPINE [Suspect]
     Active Substance: QUETIAPINE
     Indication: Hallucination
     Dosage: STRENGTH: 50 MG
     Dates: end: 20240902
  2. OXAZEPAM [Suspect]
     Active Substance: OXAZEPAM
     Indication: Anxiety
     Dosage: STRENGTH: 10 MG
     Dates: end: 20240902
  3. MIANSERIN [Concomitant]
     Active Substance: MIANSERIN
     Indication: Mixed anxiety and depressive disorder
  4. URAPIDIL [Concomitant]
     Active Substance: URAPIDIL
     Indication: Hypertension
  5. TEGRETOL [Concomitant]
     Active Substance: CARBAMAZEPINE
     Indication: Product used for unknown indication
     Dosage: STRENGTH: 200 MG PROLONGED-RELEASE FILM-COATED TABLET
  6. BISOPROLOL [Concomitant]
     Active Substance: BISOPROLOL\BISOPROLOL FUMARATE
     Indication: Hypertension
  7. QUETIAPINE [Suspect]
     Active Substance: QUETIAPINE
     Indication: Hallucination
     Dosage: STRENGTH: 50 MG
     Dates: start: 20240902, end: 20240906
  8. QUETIAPINE [Suspect]
     Active Substance: QUETIAPINE
     Indication: Hallucination
     Dosage: STRENGTH: 50 MG
     Dates: start: 20240906
  9. OXAZEPAM [Suspect]
     Active Substance: OXAZEPAM
     Indication: Anxiety
     Dosage: STRENGTH: 10 MG
     Dates: start: 20240902, end: 20240906
  10. OXAZEPAM [Suspect]
     Active Substance: OXAZEPAM
     Indication: Anxiety
     Dosage: STRENGTH: 10 MG
     Dates: start: 20240906

REACTIONS (3)
  - Hallucination [Not Recovered/Not Resolved]
  - Anxiety [Not Recovered/Not Resolved]
  - Incorrect dosage administered [Recovered/Resolved]

NARRATIVE: CASE EVENT DATE: 20240902
